FAERS Safety Report 16004715 (Version 1)
Quarter: 2019Q1

REPORT INFORMATION
  Report Type: Spontaneous
  Country: US (occurrence: US)
  Receive Date: 20190225
  Receipt Date: 20190225
  Transmission Date: 20190418
  Serious: No
  Sender: FDA-Public Use
  Company Number: None

PATIENT
  Age: 56 Year
  Sex: Female
  Weight: 60.75 kg

DRUGS (1)
  1. DYSPORT [Suspect]
     Active Substance: ABOBOTULINUMTOXINA
     Indication: SKIN COSMETIC PROCEDURE
     Dosage: ?          QUANTITY:5 INJECTION(S);?
     Route: 030
     Dates: start: 20190219, end: 20190219

REACTIONS (3)
  - Injection site bruising [None]
  - Injection site mass [None]
  - Skin discolouration [None]

NARRATIVE: CASE EVENT DATE: 20190219
